FAERS Safety Report 7153815-3 (Version None)
Quarter: 2010Q4

REPORT INFORMATION
  Report Type: 
  Country: None (occurrence: None)
  Receive Date: 20101213
  Receipt Date: 20100223
  Transmission Date: 20110411
  Serious: No
  Sender: FDA-Public Use
  Company Number: US-ABBOTT-10P-163-0628613-00

PATIENT
  Sex: Female
  Weight: 74.002 kg

DRUGS (2)
  1. MERIDIA [Suspect]
     Indication: WEIGHT CONTROL
     Route: 048
     Dates: end: 20100210
  2. MERIDIA [Suspect]
     Route: 048
     Dates: start: 20050101, end: 20080101

REACTIONS (6)
  - BONE PAIN [None]
  - DRUG EFFECT DECREASED [None]
  - EXOSTOSIS [None]
  - NASAL CONGESTION [None]
  - PLANTAR FASCIITIS [None]
  - ROTATOR CUFF SYNDROME [None]
